FAERS Safety Report 7553560-6 (Version None)
Quarter: 2011Q2

REPORT INFORMATION
  Report Type: 
  Country: None (occurrence: None)
  Receive Date: 20110617
  Receipt Date: 20110607
  Transmission Date: 20111010
  Serious: Yes (Hospitalization)
  Sender: FDA-Public Use
  Company Number: US-JNJFOC-20110604181

PATIENT
  Sex: Male

DRUGS (5)
  1. MULTI-VITAMINS [Concomitant]
     Route: 048
  2. DILANTIN [Concomitant]
     Indication: CONVULSION
     Dosage: AT NIGHT
     Route: 048
  3. DILANTIN [Concomitant]
     Dosage: AT NIGHT
     Route: 048
  4. ZYTIGA [Suspect]
     Indication: PROSTATE CANCER METASTATIC
     Route: 048
     Dates: start: 20110606, end: 20110607
  5. CRESTOR [Concomitant]
     Indication: BLOOD CHOLESTEROL INCREASED
     Route: 048

REACTIONS (2)
  - LOSS OF CONSCIOUSNESS [None]
  - VISUAL IMPAIRMENT [None]
